FAERS Safety Report 10345546 (Version 2)
Quarter: 2014Q3

REPORT INFORMATION
  Report Type: Spontaneous
  Country: US (occurrence: US)
  Receive Date: 20140728
  Receipt Date: 20140905
  Transmission Date: 20150326
  Serious: No
  Sender: FDA-Public Use
  Company Number: US-TEVA-494566USA

PATIENT
  Age: 88 Year
  Sex: Male
  Weight: 71.73 kg

DRUGS (2)
  1. QNASL [Suspect]
     Active Substance: BECLOMETHASONE DIPROPIONATE
     Indication: RHINITIS ALLERGIC
     Dates: start: 20140624
  2. LISINOPRIL. [Concomitant]
     Active Substance: LISINOPRIL
     Indication: HYPERTENSION

REACTIONS (1)
  - Sneezing [Recovered/Resolved]

NARRATIVE: CASE EVENT DATE: 20140625
